FAERS Safety Report 8408588-0 (Version None)
Quarter: 2012Q2

REPORT INFORMATION
  Report Type: 
  Country: None (occurrence: None)
  Receive Date: 20120604
  Receipt Date: 20120208
  Transmission Date: 20120825
  Serious: No
  Sender: FDA-Public Use
  Company Number: US-NOVEN-12US004069

PATIENT
  Sex: Male
  Weight: 31.746 kg

DRUGS (5)
  1. DAYTRANA [Suspect]
     Dosage: 20 MG X 2 PATCHES, QD
     Route: 062
     Dates: start: 20120207, end: 20120207
  2. SABRIL [Concomitant]
     Indication: CONVULSION
  3. DAYTRANA [Suspect]
     Dosage: 20 MG, QD
     Route: 062
     Dates: start: 20120202, end: 20120206
  4. CLONIDINE [Concomitant]
     Indication: SOMNOLENCE
  5. DAYTRANA [Suspect]
     Indication: ATTENTION DEFICIT/HYPERACTIVITY DISORDER
     Dosage: 20 MG X 1 1/2 PATCH, QD
     Route: 062
     Dates: start: 20120208

REACTIONS (6)
  - PRODUCT QUALITY ISSUE [None]
  - WRONG TECHNIQUE IN DRUG USAGE PROCESS [None]
  - MUSCLE TIGHTNESS [None]
  - AGGRESSION [None]
  - DRUG PRESCRIBING ERROR [None]
  - INCORRECT DRUG ADMINISTRATION DURATION [None]
